FAERS Safety Report 7548969-0 (Version None)
Quarter: 2011Q2

REPORT INFORMATION
  Report Type: 
  Country: None (occurrence: None)
  Receive Date: 20110615
  Receipt Date: 20110606
  Transmission Date: 20111010
  Serious: Yes (Other)
  Sender: FDA-Public Use
  Company Number: ES-AMGEN-ESPSP2011024798

PATIENT
  Age: 60 Year
  Sex: Male

DRUGS (7)
  1. NPLATE [Suspect]
     Indication: IDIOPATHIC THROMBOCYTOPENIC PURPURA
     Dosage: UNK
     Route: 058
     Dates: start: 20090315, end: 20110429
  2. RITUXIMAB [Concomitant]
  3. ENALAPRIL MALEATE [Concomitant]
     Indication: HYPERTENSION
     Dosage: 200 MG, QD
  4. CORTICOSTEROID NOS [Concomitant]
  5. METFORMIN HCL [Concomitant]
     Indication: DIABETES MELLITUS
     Dosage: 855 MG, QD
  6. EKISTOL [Concomitant]
     Indication: ISCHAEMIA
     Dosage: 100 MG, Q12H
     Dates: start: 20091105
  7. HEMOVAS [Concomitant]
     Indication: ISCHAEMIA
     Dosage: 400 MG, Q8H
     Dates: start: 20050101, end: 20091106

REACTIONS (5)
  - BONE MARROW RETICULIN FIBROSIS [None]
  - BLAST CELL COUNT INCREASED [None]
  - MULTIPLE MYELOMA [None]
  - PLATELET COUNT DECREASED [None]
  - DYSPLASIA [None]
